FAERS Safety Report 9397748 (Version 1)
Quarter: 2013Q3

REPORT INFORMATION
  Report Type: Report from Study
  Country: CA (occurrence: CA)
  Receive Date: 20130712
  Receipt Date: 20130712
  Transmission Date: 20140515
  Serious: Yes (Hospitalization, Other)
  Sender: FDA-Public Use
  Company Number: CA-JNJFOC-20130701484

PATIENT
  Age: 35 Year
  Sex: Male
  Weight: 92.8 kg

DRUGS (3)
  1. REMICADE [Suspect]
     Indication: CROHN^S DISEASE
     Dosage: 800 MG ONCE 8 WEEKS SINCE 29-SEP-201 (YEAR UNSPECIFIED)
     Route: 042
  2. REMICADE [Suspect]
     Indication: CROHN^S DISEASE
     Route: 042
     Dates: start: 20100517
  3. TYLENOL 3 [Concomitant]
     Route: 065

REACTIONS (4)
  - Rectal abscess [Not Recovered/Not Resolved]
  - Abscess [Not Recovered/Not Resolved]
  - Fistula [Not Recovered/Not Resolved]
  - Weight decreased [Unknown]
